FAERS Safety Report 6039427-3 (Version None)
Quarter: 2009Q1

REPORT INFORMATION
  Report Type: 
  Country: None (occurrence: None)
  Receive Date: 20090115
  Receipt Date: 20081028
  Transmission Date: 20090719
  Serious: Yes (Other)
  Sender: FDA-Public Use
  Company Number: JP-GENENTECH-270989

PATIENT
  Age: 61 Year
  Sex: Female

DRUGS (4)
  1. AVASTIN [Suspect]
     Indication: COLON CANCER METASTATIC
     Dosage: 10 MG/KG, Q2W
     Route: 042
  2. ELPLAT [Concomitant]
     Indication: COLON CANCER
  3. FLUOROURACIL [Concomitant]
     Indication: COLON CANCER
  4. CALCIUM LEVOFOLINATE [Concomitant]
     Indication: COLON CANCER

REACTIONS (2)
  - INTESTINAL OBSTRUCTION [None]
  - INTESTINAL PERFORATION [None]
